FAERS Safety Report 4530181-0 (Version None)
Quarter: 2004Q4

REPORT INFORMATION
  Report Type: 
  Country: None (occurrence: None)
  Receive Date: 20041215
  Receipt Date: 20041215
  Transmission Date: 20050328
  Serious: Yes (Hospitalization, Disabling)
  Sender: FDA-Public Use
  Company Number: None

PATIENT
  Age: 58 Year
  Sex: Female
  Weight: 89.3586 kg

DRUGS (11)
  1. LITHIUM  450MG ER [Suspect]
     Dosage: 450MG ER BID-1,2- ORAL
     Route: 048
  2. RITALIN [Concomitant]
  3. GLUCOTROL [Concomitant]
  4. DIOVAN [Concomitant]
  5. DITROPAN XL [Concomitant]
  6. CENTRUM MVI [Concomitant]
  7. KCL TAB [Concomitant]
  8. ZYPREXA [Concomitant]
  9. LIPITOR [Concomitant]
  10. EFFEXOR [Concomitant]
  11. FEMHRT [Concomitant]

REACTIONS (10)
  - ABASIA [None]
  - ARRHYTHMIA [None]
  - ASTHENIA [None]
  - BALANCE DISORDER [None]
  - BLOOD PRESSURE INCREASED [None]
  - DYSARTHRIA [None]
  - NEPHROGENIC DIABETES INSIPIDUS [None]
  - POLYURIA [None]
  - RENAL FAILURE ACUTE [None]
  - TREMOR [None]
